FAERS Safety Report 8476868-9 (Version None)
Quarter: 2012Q2

REPORT INFORMATION
  Report Type: 
  Country: None (occurrence: None)
  Receive Date: 20120629
  Receipt Date: 20120620
  Transmission Date: 20120825
  Serious: Yes (Hospitalization)
  Sender: FDA-Public Use
  Company Number: US-BIOGENIDEC-2011BI019078

PATIENT
  Age: 55 Year
  Sex: Male

DRUGS (1)
  1. AVONEX [Suspect]
     Indication: MULTIPLE SCLEROSIS
     Route: 030
     Dates: start: 20080607

REACTIONS (5)
  - URINARY RETENTION [None]
  - CYSTITIS [None]
  - SURGERY [None]
  - WOUND DEHISCENCE [None]
  - INTERVERTEBRAL DISC PROTRUSION [None]
